FAERS Safety Report 14873194 (Version 1)
Quarter: 2018Q2

REPORT INFORMATION
  Report Type: Spontaneous
  Country: US (occurrence: US)
  Receive Date: 20180424
  Receipt Date: 20180424
  Transmission Date: 20180711
  Serious: Yes (Life-Threatening, Hospitalization, Other)
  Sender: FDA-Public Use
  Company Number: None

PATIENT
  Age: 32 Year
  Sex: Female
  Weight: 95 kg

DRUGS (1)
  1. TRANEXAMIC ACID. [Suspect]
     Active Substance: TRANEXAMIC ACID
     Indication: CONGENITAL THROMBOCYTE DISORDER
     Route: 041
     Dates: start: 20180409, end: 20180424

REACTIONS (3)
  - Rhabdomyolysis [None]
  - Generalised tonic-clonic seizure [None]
  - Acute kidney injury [None]

NARRATIVE: CASE EVENT DATE: 20180415
